FAERS Safety Report 11857807 (Version 1)
Quarter: 2015Q4

REPORT INFORMATION
  Report Type: Spontaneous
  Country: US (occurrence: None)
  Receive Date: 20151221
  Receipt Date: 20151221
  Transmission Date: 20160305
  Serious: Yes (Life-Threatening, Hospitalization)
  Sender: FDA-Public Use
  Company Number: None

PATIENT
  Age: 76 Year
  Sex: Male
  Weight: 75.5 kg

DRUGS (1)
  1. AXITINIB [Suspect]
     Active Substance: AXITINIB
     Indication: NEOPLASM MALIGNANT
     Route: 048
     Dates: start: 20151019, end: 20151123

REACTIONS (7)
  - Hypertensive crisis [None]
  - Cerebrovascular accident [None]
  - Balance disorder [None]
  - Headache [None]
  - Terminal insomnia [None]
  - Memory impairment [None]
  - Toxic encephalopathy [None]

NARRATIVE: CASE EVENT DATE: 20151102
